FAERS Safety Report 7741374-3 (Version None)
Quarter: 2011Q3

REPORT INFORMATION
  Report Type: 
  Country: None (occurrence: None)
  Receive Date: 20110909
  Receipt Date: 20110907
  Transmission Date: 20111222
  Serious: Yes (Death)
  Sender: FDA-Public Use
  Company Number: PHHY2009NL67028

PATIENT
  Sex: Female
  Weight: 58 kg

DRUGS (4)
  1. HYDROCORTISONE [Concomitant]
  2. NORPROLAC [Concomitant]
  3. SANDOSTATIN LAR [Suspect]
     Indication: ACROMEGALY
     Dosage: 10 MG, ONCE PER 3 WEEK
     Route: 030
     Dates: start: 20070618
  4. SANDOSTATIN LAR [Suspect]
     Dosage: 10 MG, ONCE PER 3 WEEK
     Route: 030
     Dates: start: 20090423

REACTIONS (1)
  - GLIOBLASTOMA [None]
